FAERS Safety Report 8510133-6 (Version None)
Quarter: 2012Q3

REPORT INFORMATION
  Report Type: 
  Country: None (occurrence: None)
  Receive Date: 20120713
  Receipt Date: 20120706
  Transmission Date: 20120928
  Serious: Yes (Hospitalization)
  Sender: FDA-Public Use
  Company Number: US-B.I. PHARMACEUTICALS,INC./RIDGEFIELD-2012-BP-15137BP

PATIENT
  Age: 53 Year
  Sex: Male

DRUGS (5)
  1. LISINOPRIL [Concomitant]
  2. PRADAXA [Suspect]
     Indication: ATRIAL FIBRILLATION
     Dosage: 300 MG
     Route: 048
     Dates: start: 20120701, end: 20120702
  3. ALDACTONE [Concomitant]
  4. LASIX [Concomitant]
  5. PERCOCET [Concomitant]
     Indication: BACK PAIN

REACTIONS (3)
  - DYSPNOEA [None]
  - TRAUMATIC LUNG INJURY [None]
  - HYPOXIA [None]
